FAERS Safety Report 23445721 (Version 13)
Quarter: 2024Q4

REPORT INFORMATION
  Report Type: Report from Study
  Country: CA (occurrence: CA)
  Receive Date: 20240126
  Receipt Date: 20241225
  Transmission Date: 20250114
  Serious: Yes (Hospitalization, Other)
  Sender: GLAXOSMITHKLINE
  Company Number: CA-GLAXOSMITHKLINE-CA2023AMR096355

PATIENT

DRUGS (27)
  1. MEPOLIZUMAB [Suspect]
     Active Substance: MEPOLIZUMAB
     Indication: Asthma
     Dosage: 100 MG, Q4W
     Route: 058
     Dates: start: 20200702
  2. MEPOLIZUMAB [Suspect]
     Active Substance: MEPOLIZUMAB
     Indication: Asthma
     Dosage: 100 MG, Q4W
     Route: 058
  3. MEPOLIZUMAB [Suspect]
     Active Substance: MEPOLIZUMAB
     Indication: Asthma
     Dosage: 100 MG, Q4W
     Route: 058
  4. MEPOLIZUMAB [Suspect]
     Active Substance: MEPOLIZUMAB
     Indication: Asthma
     Dosage: 100 MG, Q4W
     Route: 058
  5. MEPOLIZUMAB [Suspect]
     Active Substance: MEPOLIZUMAB
     Indication: Asthma
     Dosage: 100 MG, Q4W
     Route: 058
  6. MEPOLIZUMAB [Suspect]
     Active Substance: MEPOLIZUMAB
     Indication: Asthma
     Dosage: 100 MG, Q4W
     Route: 058
  7. MEPOLIZUMAB [Suspect]
     Active Substance: MEPOLIZUMAB
     Indication: Asthma
     Dosage: 100 MG, Q4W
     Route: 058
  8. MEPOLIZUMAB [Suspect]
     Active Substance: MEPOLIZUMAB
     Indication: Asthma
     Dosage: 100 MG, Q4W
     Route: 058
  9. MEPOLIZUMAB [Suspect]
     Active Substance: MEPOLIZUMAB
     Indication: Asthma
     Dosage: 100 MG, Q4W
     Route: 058
  10. MEPOLIZUMAB [Suspect]
     Active Substance: MEPOLIZUMAB
     Indication: Asthma
     Dosage: 100 MG, Q4W
     Route: 058
  11. MEPOLIZUMAB [Suspect]
     Active Substance: MEPOLIZUMAB
     Indication: Asthma
     Dosage: 100 MG, Q4W
     Route: 058
  12. SUCRALFATE [Suspect]
     Active Substance: SUCRALFATE
     Indication: Dyspepsia
     Dosage: 1 G, QD
  13. LOVENOX [Suspect]
     Active Substance: ENOXAPARIN SODIUM
     Indication: International normalised ratio decreased
     Dosage: 2 DF, QD (80MG/0.8ML INJECTION)
     Route: 058
     Dates: start: 20240729
  14. PREDNISONE [Suspect]
     Active Substance: PREDNISONE
     Indication: Blood glucose fluctuation
     Dosage: 5 MG (6 WEEKS)
  15. PREDNISONE [Suspect]
     Active Substance: PREDNISONE
     Dosage: 10 MG10 MG, 6 TABS TO 1 TAB (TAPERING), ER PLAN
  16. PREDNISONE [Suspect]
     Active Substance: PREDNISONE
     Dosage: 30 MG, BID
  17. FLUCONAZOLE [Concomitant]
     Active Substance: FLUCONAZOLE
     Indication: Product used for unknown indication
     Dosage: 100 MG, 4 TABS X7 DAYS
     Dates: start: 20230720
  18. FLUCONAZOLE [Concomitant]
     Active Substance: FLUCONAZOLE
     Dosage: 100 MG, QID
     Dates: start: 20230728
  19. FLUCONAZOLE [Concomitant]
     Active Substance: FLUCONAZOLE
     Dosage: 100 MG, 2 TABS X14 DAYS
     Dates: start: 20230824
  20. FLUCONAZOLE [Concomitant]
     Active Substance: FLUCONAZOLE
     Dosage: 100 MG, QID 4 TABS DAILY X 1 WK
     Dates: start: 20230825
  21. FLUCONAZOLE [Concomitant]
     Active Substance: FLUCONAZOLE
     Dosage: 100 MG, 2 TABS X14 DAYS
     Dates: start: 20230901
  22. FLUCONAZOLE [Concomitant]
     Active Substance: FLUCONAZOLE
     Dosage: 100 MG, QD, 4 TABS, X 1 WEEK
  23. SULFATRIM [Concomitant]
     Active Substance: SULFAMETHOXAZOLE\TRIMETHOPRIM
     Indication: Product used for unknown indication
     Dosage: UNK, 160-800MG 3 X/WEEK X 4 WEEKS
  24. CYCLOBENZAPRINE [Concomitant]
     Active Substance: CYCLOBENZAPRINE
     Indication: Product used for unknown indication
     Dosage: 10 MG (PRN)
  25. AMOXICILLIN\CLAVULANATE POTASSIUM [Concomitant]
     Active Substance: AMOXICILLIN\CLAVULANATE POTASSIUM
     Indication: Product used for unknown indication
     Dosage: UNK, 875-125MG
  26. FUROSEMIDE [Concomitant]
     Active Substance: FUROSEMIDE
     Indication: Product used for unknown indication
     Dosage: UNK UNK, BID (1.5 TAB TO 2 TABS BID
  27. FUROSEMIDE [Concomitant]
     Active Substance: FUROSEMIDE
     Dosage: UNK UNK, BID, (40 MG, 1 1/2 TAB TO 2 TABS BID)

REACTIONS (62)
  - Diarrhoea [Unknown]
  - Feeding disorder [Unknown]
  - Abdominal discomfort [Unknown]
  - Atrial fibrillation [Unknown]
  - Hyperglycaemia [Unknown]
  - Dizziness [Unknown]
  - Spontaneous haemorrhage [Unknown]
  - Haematoma [Unknown]
  - Urticaria [Unknown]
  - Vaginal haemorrhage [Unknown]
  - Anticoagulation drug level above therapeutic [Unknown]
  - Diabetes mellitus inadequate control [Unknown]
  - Vocal cord operation [Unknown]
  - Fungal pharyngitis [Not Recovered/Not Resolved]
  - Ankylosing spondylitis [Unknown]
  - Haematochezia [Recovered/Resolved]
  - Pneumonitis [Unknown]
  - Liver injury [Unknown]
  - Pharyngeal cyst [Unknown]
  - Dysphonia [Unknown]
  - Dyspnoea [Unknown]
  - Dyspepsia [Unknown]
  - Tooth infection [Unknown]
  - Fungal infection [Unknown]
  - International normalised ratio increased [Unknown]
  - Oropharyngeal pain [Unknown]
  - Blood pressure abnormal [Unknown]
  - Fatigue [Unknown]
  - Blood pressure increased [Unknown]
  - Drug hypersensitivity [Unknown]
  - Malaise [Unknown]
  - Injection site pain [Unknown]
  - Cough [Not Recovered/Not Resolved]
  - Breast discharge [Unknown]
  - Muscle spasms [Unknown]
  - Tongue coated [Unknown]
  - Dry mouth [Unknown]
  - Constipation [Unknown]
  - Pain [Unknown]
  - Peripheral swelling [Not Recovered/Not Resolved]
  - Joint swelling [Not Recovered/Not Resolved]
  - Blood cholesterol increased [Unknown]
  - Blood glucose increased [Unknown]
  - Arthralgia [Unknown]
  - Back pain [Unknown]
  - Contusion [Unknown]
  - Inflammation [Unknown]
  - Dehydration [Unknown]
  - Decreased appetite [Unknown]
  - Hypophagia [Unknown]
  - Osteoarthritis [Unknown]
  - Hepatic steatosis [Unknown]
  - International normalised ratio decreased [Unknown]
  - Blood pressure diastolic increased [Unknown]
  - Burning sensation [Unknown]
  - Weight decreased [Unknown]
  - Blood glucose abnormal [Unknown]
  - Dyslexia [Unknown]
  - Reading disorder [Unknown]
  - Memory impairment [Unknown]
  - Productive cough [Not Recovered/Not Resolved]
  - Dyspnoea exertional [Unknown]

NARRATIVE: CASE EVENT DATE: 20230701
